FAERS Safety Report 8720937 (Version 2)
Quarter: 2012Q4

REPORT INFORMATION
  Report Type: 
  Country: SE (occurrence: SE)
  Receive Date: 20120813
  Receipt Date: 20120913
  Transmission Date: 20130627
  Serious: Yes (Other)
  Sender: FDA-Public Use
  Company Number: SE-PFIZER INC-2012182231

PATIENT
  Sex: Female

DRUGS (3)
  1. XANOR [Suspect]
     Indication: INJURY
     Dosage: UNK
     Dates: start: 20081211
  2. XANOR [Suspect]
     Indication: BURNOUT SYNDROME
     Dosage: 3 mg, daily
  3. XANOR [Suspect]
     Dosage: 7.5 mg, daily
     Dates: start: 2009, end: 20120116

REACTIONS (16)
  - Withdrawal syndrome [Unknown]
  - Substance-induced psychotic disorder [Unknown]
  - Hallucination [Unknown]
  - Drug dependence [Unknown]
  - Quality of life decreased [Not Recovered/Not Resolved]
  - Dyslexia [Not Recovered/Not Resolved]
  - Balance disorder [Not Recovered/Not Resolved]
  - Bedridden [Not Recovered/Not Resolved]
  - Movement disorder [Not Recovered/Not Resolved]
  - Feeling abnormal [Unknown]
  - Pain [Not Recovered/Not Resolved]
  - Muscle spasms [Not Recovered/Not Resolved]
  - Malaise [Unknown]
  - Overdose [Unknown]
  - Memory impairment [Not Recovered/Not Resolved]
  - None [Not Recovered/Not Resolved]
